FAERS Safety Report 5509344-3 (Version None)
Quarter: 2007Q4

REPORT INFORMATION
  Report Type: 
  Country: None (occurrence: None)
  Receive Date: 20071107
  Receipt Date: 20071026
  Transmission Date: 20080405
  Serious: Yes (Other)
  Sender: FDA-Public Use
  Company Number: US-PFIZER INC-2007091412

PATIENT
  Sex: Female
  Weight: 72.727 kg

DRUGS (7)
  1. CHANTIX [Suspect]
     Indication: SMOKING CESSATION THERAPY
     Dosage: TEXT:EVERY DAY
  2. MECLIZINE [Concomitant]
  3. NORTRIPTYLINE HCL [Concomitant]
  4. CELEBREX [Concomitant]
  5. SIMVASTATIN [Concomitant]
  6. FLUOXETINE [Concomitant]
  7. NEXIUM [Concomitant]

REACTIONS (3)
  - ARTHRITIS [None]
  - DEMENTIA [None]
  - WRONG TECHNIQUE IN DRUG USAGE PROCESS [None]
